FAERS Safety Report 6152859-8 (Version None)
Quarter: 2009Q2

REPORT INFORMATION
  Report Type: 
  Country: None (occurrence: None)
  Receive Date: 20090413
  Receipt Date: 20090306
  Transmission Date: 20091009
  Serious: Yes (Other)
  Sender: FDA-Public Use
  Company Number: ZA-BRISTOL-MYERS SQUIBB COMPANY-14581557

PATIENT
  Age: 52 Year
  Sex: Male

DRUGS (6)
  1. GLUCOPHAGE [Suspect]
  2. DIOVAN [Suspect]
     Dosage: 160MG,320MG,UNKNOWN-JUN08,JUN08-UNKNOWN.
     Dates: start: 20080601
  3. ADALAT CC [Suspect]
  4. NEBILET [Suspect]
  5. CRESTOR [Suspect]
  6. ALLOPURINOL [Suspect]

REACTIONS (1)
  - RENAL FAILURE [None]
